FAERS Safety Report 4594471-8 (Version None)
Quarter: 2005Q1

REPORT INFORMATION
  Report Type: 
  Country: None (occurrence: None)
  Receive Date: 20050223
  Receipt Date: 20050214
  Transmission Date: 20050727
  Serious: Yes (Other)
  Sender: FDA-Public Use
  Company Number: S05-USA-00337-01

PATIENT
  Age: 48 Year
  Sex: Male
  Weight: 77.1115 kg

DRUGS (7)
  1. CAMPRAL [Suspect]
     Indication: ALCOHOLISM
     Dosage: 666 MG TID PO
     Route: 048
     Dates: start: 20050113
  2. NALTREXONE [Suspect]
     Indication: ALCOHOLISM
     Dosage: 100 MG QD
     Dates: end: 20050113
  3. ALCOHOL [Suspect]
     Dates: start: 20050115, end: 20050115
  4. MIRTAZAPINE [Concomitant]
  5. TRAZODONE HCL [Concomitant]
  6. RITALIN [Concomitant]
  7. MARIJUANA             (MARIJUANA) [Concomitant]

REACTIONS (7)
  - BLOOD ALKALINE PHOSPHATASE INCREASED [None]
  - CEREBROVASCULAR ACCIDENT [None]
  - COMPLEX PARTIAL SEIZURES [None]
  - DRUG SCREEN POSITIVE [None]
  - HAEMATOCRIT DECREASED [None]
  - OFF LABEL USE [None]
  - TRANSIENT ISCHAEMIC ATTACK [None]
